FAERS Safety Report 22191441 (Version 4)
Quarter: 2023Q2

REPORT INFORMATION
  Report Type: Spontaneous
  Country: GB (occurrence: GB)
  Receive Date: 20230410
  Receipt Date: 20230522
  Transmission Date: 20230721
  Serious: No
  Sender: FDA-Public Use
  Company Number: GB-PFIZER INC-PV202300056033

PATIENT
  Age: 1 Year
  Sex: Male

DRUGS (1)
  1. GENOTROPIN [Suspect]
     Active Substance: SOMATROPIN
     Indication: Small for dates baby
     Dosage: UNK
     Route: 058
     Dates: start: 202302

REACTIONS (3)
  - Wrong technique in device usage process [Unknown]
  - Product storage error [Unknown]
  - Device breakage [Unknown]
